FAERS Safety Report 6273087-1 (Version None)
Quarter: 2009Q3

REPORT INFORMATION
  Report Type: 
  Country: None (occurrence: None)
  Receive Date: 20090715
  Receipt Date: 20090715
  Transmission Date: 20100115
  Serious: Yes (Other)
  Sender: FDA-Public Use
  Company Number: None

PATIENT
  Age: 4 Year
  Sex: Male
  Weight: 22.7 kg

DRUGS (1)
  1. BACTRIM [Suspect]
     Indication: SKIN INFECTION
     Dates: start: 20090525, end: 20090601

REACTIONS (1)
  - RASH GENERALISED [None]
